FAERS Safety Report 15708902 (Version 1)
Quarter: 2018Q4

REPORT INFORMATION
  Report Type: Spontaneous
  Country: US (occurrence: US)
  Receive Date: 20181211
  Receipt Date: 20181211
  Transmission Date: 20190205
  Serious: Yes (Other)
  Sender: FDA-Public Use
  Company Number: None

PATIENT
  Age: 28 Year
  Sex: Female
  Weight: 56.25 kg

DRUGS (2)
  1. ORILISSA [Suspect]
     Active Substance: ELAGOLIX SODIUM
     Indication: ENDOMETRIOSIS
     Dosage: ?          QUANTITY:1 TABLET(S);?
     Route: 048
  2. ZOLOFT [Concomitant]
     Active Substance: SERTRALINE HYDROCHLORIDE

REACTIONS (8)
  - Anger [None]
  - Feeling abnormal [None]
  - Depression [None]
  - Suicidal ideation [None]
  - Insomnia [None]
  - Crying [None]
  - Asthenia [None]
  - Bedridden [None]

NARRATIVE: CASE EVENT DATE: 20181101
